FAERS Safety Report 9241907 (Version 1)
Quarter: 2013Q2

REPORT INFORMATION
  Report Type: Spontaneous
  Country: US (occurrence: US)
  Receive Date: 20130419
  Receipt Date: 20130419
  Transmission Date: 20140414
  Serious: Yes (Other)
  Sender: FDA-Public Use
  Company Number: US-ROCHE-1215135

PATIENT
  Sex: 0

DRUGS (1)
  1. ACTIVASE [Suspect]
     Indication: PRODUCT USED FOR UNKNOWN INDICATION
     Route: 065

REACTIONS (3)
  - Aphasia [Unknown]
  - Hemiplegia [Unknown]
  - Electrocardiogram abnormal [Unknown]
